FAERS Safety Report 14494838 (Version 2)
Quarter: 2018Q1

REPORT INFORMATION
  Report Type: Spontaneous
  Country: IN (occurrence: IN)
  Receive Date: 20180206
  Receipt Date: 20180215
  Transmission Date: 20180509
  Serious: Yes (Hospitalization)
  Sender: FDA-Public Use
  Company Number: IN-TEVA-2018-IN-854823

PATIENT
  Age: 5 Day
  Sex: Male

DRUGS (3)
  1. TOBRAMYCIN. [Concomitant]
     Active Substance: TOBRAMYCIN
     Dosage: TOPICAL ANTIBIOTIC EYEDROPS AND EYE OINTMENT
  2. CARBOXYMETHYLCELLULOSE SODIUM. [Concomitant]
     Active Substance: CARBOXYMETHYLCELLULOSE SODIUM
     Dosage: TOPICAL LUBRICATING EYEDROPS
  3. ACITRETIN. [Suspect]
     Active Substance: ACITRETIN
     Indication: ECTROPION
     Dosage: 1 MG/KG DAILY;
     Route: 048

REACTIONS (3)
  - Ocular hyperaemia [Unknown]
  - Erythema [Unknown]
  - Off label use [Unknown]
